FAERS Safety Report 6605131-3 (Version None)
Quarter: 2010Q1

REPORT INFORMATION
  Report Type: 
  Country: None (occurrence: None)
  Receive Date: 20100226
  Receipt Date: 20091207
  Transmission Date: 20100710
  Serious: Yes (Death, Hospitalization)
  Sender: FDA-Public Use
  Company Number: ES-SANOFI-AVENTIS-2010SA010498

PATIENT
  Age: 70 Year
  Sex: Male

DRUGS (8)
  1. OXALIPLATIN [Suspect]
     Indication: COLON CANCER
     Route: 041
     Dates: start: 20070606, end: 20070606
  2. OXALIPLATIN [Suspect]
     Route: 041
     Dates: start: 20071210, end: 20071210
  3. CETUXIMAB [Suspect]
     Indication: COLON CANCER
     Route: 042
     Dates: start: 20070606, end: 20070606
  4. CETUXIMAB [Suspect]
     Route: 042
     Dates: start: 20071210, end: 20071210
  5. FLUOROURACIL [Suspect]
     Indication: COLON CANCER
     Route: 042
     Dates: start: 20070606, end: 20070607
  6. FLUOROURACIL [Suspect]
     Route: 042
     Dates: start: 20071210, end: 20071211
  7. FOLINIC ACID [Suspect]
     Indication: COLON CANCER
     Route: 042
     Dates: start: 20070606, end: 20070607
  8. FOLINIC ACID [Suspect]
     Route: 042
     Dates: start: 20071210, end: 20071211

REACTIONS (2)
  - PNEUMONIA [None]
  - SEPTIC SHOCK [None]
